FAERS Safety Report 9018176 (Version 1)
Quarter: 2013Q1

REPORT INFORMATION
  Report Type: Report from Study
  Country: BR (occurrence: BR)
  Receive Date: 20130117
  Receipt Date: 20130117
  Transmission Date: 20140127
  Serious: Yes (Other)
  Sender: FDA-Public Use
  Company Number: BR-ABBOTT-13P-020-1035568-00

PATIENT
  Age: 15 None
  Sex: Male

DRUGS (3)
  1. DEPAKENE [Suspect]
     Indication: CONVULSION
     Route: 048
  2. CLONAZEPAM [Concomitant]
     Indication: SLEEP DISORDER
     Dosage: AT NIGHT
     Route: 048
  3. RISPERIDONE [Concomitant]
     Indication: PRODUCT USED FOR UNKNOWN INDICATION
     Dosage: IN THE MORNING

REACTIONS (8)
  - Cerebral haemorrhage [Recovered/Resolved]
  - Gastric haemorrhage [Recovered/Resolved]
  - Helicobacter gastritis [Unknown]
  - Gastritis [Unknown]
  - Nodule [Unknown]
  - Erosive oesophagitis [Unknown]
  - Convulsion [Not Recovered/Not Resolved]
  - Drug ineffective [Unknown]
